FAERS Safety Report 5059298-1 (Version None)
Quarter: 2006Q3

REPORT INFORMATION
  Report Type: 
  Country: None (occurrence: None)
  Receive Date: 20060724
  Receipt Date: 20060712
  Transmission Date: 20061208
  Serious: Yes (Hospitalization)
  Sender: FDA-Public Use
  Company Number: US-JNJFOC-20060500654

PATIENT
  Sex: Male
  Weight: 95.26 kg

DRUGS (5)
  1. REMICADE [Suspect]
     Indication: CROHN'S DISEASE
     Dosage: 3 YEARS
  2. IMURAN [Concomitant]
     Indication: ARTHRITIS
     Dosage: ABOUT A YEAR
  3. ASACOL [Concomitant]
     Indication: INTESTINAL FUNCTIONAL DISORDER
     Dosage: 3 YEARS OR MORE
  4. AMBIEN [Concomitant]
     Indication: SLEEP DISORDER
     Dosage: 1 YEAR
  5. XANAX [Concomitant]
     Indication: NERVOUSNESS
     Dosage: 4 OR 5 YEARS

REACTIONS (4)
  - APPENDICITIS [None]
  - NEPHROLITHIASIS [None]
  - PULMONARY CALCIFICATION [None]
  - PULMONARY GRANULOMA [None]
